FAERS Safety Report 7186694-9 (Version None)
Quarter: 2010Q4

REPORT INFORMATION
  Report Type: 
  Country: None (occurrence: None)
  Receive Date: 20101222
  Receipt Date: 20100625
  Transmission Date: 20110411
  Serious: No
  Sender: FDA-Public Use
  Company Number: US-AMGEN-TCS417111

PATIENT

DRUGS (5)
  1. ENBREL [Suspect]
     Indication: RHEUMATOID ARTHRITIS
     Dosage: 50 MG, QWK
     Route: 058
     Dates: start: 20100208
  2. METHOTREXATE [Suspect]
     Dosage: UNK UNK, UNK
     Dates: start: 20081201, end: 20100101
  3. FOLIC ACID [Concomitant]
     Dosage: UNK UNK, UNK
     Dates: start: 20081201, end: 20100528
  4. CETIRIZINE HYDROCHLORIDE [Concomitant]
  5. NAPROXEN SODIUM [Concomitant]

REACTIONS (6)
  - ALOPECIA [None]
  - BLISTER [None]
  - MOBILITY DECREASED [None]
  - OEDEMA PERIPHERAL [None]
  - PAIN IN EXTREMITY [None]
  - RHEUMATOID ARTHRITIS [None]
